FAERS Safety Report 11047876 (Version 2)
Quarter: 2015Q2

REPORT INFORMATION
  Report Type: Spontaneous
  Country: US (occurrence: US)
  Receive Date: 20150420
  Receipt Date: 20150427
  Transmission Date: 20150821
  Serious: No
  Sender: FDA-Public Use
  Company Number: US-PFIZER INC-2015124569

PATIENT
  Age: 81 Year
  Sex: Male
  Weight: 57 kg

DRUGS (6)
  1. SUTENT [Suspect]
     Active Substance: SUNITINIB MALATE
     Dosage: 37.5 MG, CYCLIC ((DAILY FOR 14 DAYS AND 7 DAYS OFF)
     Route: 048
     Dates: start: 20150320
  2. PLAVIX [Concomitant]
     Active Substance: CLOPIDOGREL BISULFATE
     Dosage: UNK
  3. SINEMET [Concomitant]
     Active Substance: CARBIDOPA\LEVODOPA
     Dosage: UNK
  4. SUTENT [Suspect]
     Active Substance: SUNITINIB MALATE
     Indication: NEOPLASM MALIGNANT
     Dosage: 37.5 MG, CYCLIC (FOR 14 CONSECUTIVE DAYS ON A 21 DAY CYCLE)
     Route: 048
     Dates: start: 20150324
  5. ASPIRIN. [Concomitant]
     Active Substance: ASPIRIN
     Dosage: UNK
  6. LIPITOR [Concomitant]
     Active Substance: ATORVASTATIN CALCIUM
     Dosage: UNK

REACTIONS (11)
  - Contusion [Unknown]
  - Dyspepsia [Unknown]
  - Hiccups [Unknown]
  - Balance disorder [Unknown]
  - Pollakiuria [Unknown]
  - Cachexia [Unknown]
  - Gait disturbance [Unknown]
  - Weight decreased [Unknown]
  - Disease progression [Unknown]
  - Gastrooesophageal reflux disease [Unknown]
  - Neoplasm malignant [Unknown]
